FAERS Safety Report 9716871 (Version 1)
Quarter: 2013Q4

REPORT INFORMATION
  Report Type: Spontaneous
  Country: FR (occurrence: None)
  Receive Date: 20131125
  Receipt Date: 20131125
  Transmission Date: 20140711
  Serious: Yes (Hospitalization)
  Sender: FDA-Public Use
  Company Number: 7249665

PATIENT
  Age: 87 Year
  Sex: Female

DRUGS (5)
  1. LEVOTHYROX [Suspect]
     Indication: HYPOTHYROIDISM
     Dosage: 1 DF (1 DF,1 IN 1 D), ORAL
     Route: 048
  2. COUMADINE [Suspect]
     Indication: ATRIAL FIBRILLATION
     Dosage: 0.5 DF (0.5 DF,1 IN 1 D)
     Route: 048
  3. LAMALINE [Concomitant]
  4. NOVONORM (REPAGLINIDE) (0.5 MG, TABLET) (REPAGLINIDE) [Concomitant]
  5. UVEDOSE (COLECALCIFEROL) (COLECALCIFEROL) [Concomitant]

REACTIONS (4)
  - International normalised ratio increased [None]
  - Drug interaction [None]
  - Cardiac failure [None]
  - Tachyarrhythmia [None]
